FAERS Safety Report 10373403 (Version 1)
Quarter: 2014Q3

REPORT INFORMATION
  Report Type: Spontaneous
  Country: US (occurrence: US)
  Receive Date: 20140808
  Receipt Date: 20140808
  Transmission Date: 20150326
  Serious: No
  Sender: FDA-Public Use
  Company Number: US-BRISTOL-MYERS SQUIBB COMPANY-20573663

PATIENT
  Age: 61 Year
  Sex: Male

DRUGS (1)
  1. SPRYCEL [Suspect]
     Active Substance: DASATINIB
     Dosage: INTITALLY:HIGHER DOSE ?CUT BACK TO TWO 100 MG TABLETS DAILY

REACTIONS (4)
  - Muscle spasms [Unknown]
  - Cutis laxa [Unknown]
  - Fluid retention [Unknown]
  - Fatigue [Unknown]
